FAERS Safety Report 24772704 (Version 2)
Quarter: 2024Q4

REPORT INFORMATION
  Report Type: Spontaneous
  Country: US (occurrence: US)
  Receive Date: 20241225
  Receipt Date: 20241225
  Transmission Date: 20250115
  Serious: Yes (Life-Threatening, Hospitalization, Other)
  Sender: GLENMARK
  Company Number: US-MLMSERVICE-20241209-PI284919-00139-1

PATIENT

DRUGS (1)
  1. ETHINYL ESTRADIOL\NORETHINDRONE [Suspect]
     Active Substance: ETHINYL ESTRADIOL\NORETHINDRONE
     Indication: Menstruation irregular
     Dosage: 1MG NORETHINDRONE ACETATE AND 20MCG ETHINYL ESTRADIOL, DOSAGE FORM: PILLS
     Route: 048
     Dates: start: 2023

REACTIONS (3)
  - Coronary artery dissection [Recovered/Resolved]
  - Coronary artery occlusion [Recovered/Resolved]
  - Acute myocardial infarction [Recovered/Resolved]
